FAERS Safety Report 23139329 (Version 1)
Quarter: 2023Q4

REPORT INFORMATION
  Report Type: Spontaneous
  Country: US (occurrence: US)
  Receive Date: 20231102
  Receipt Date: 20231102
  Transmission Date: 20240110
  Serious: Yes (Hospitalization, Other)
  Sender: FDA-Public Use
  Company Number: US-Accord-385164

PATIENT
  Age: 17 Year
  Sex: Male

DRUGS (5)
  1. BICALUTAMIDE [Suspect]
     Active Substance: BICALUTAMIDE
     Indication: Transgender hormonal therapy
  2. MEDROXYPROGESTERONE ACETATE [Concomitant]
     Active Substance: MEDROXYPROGESTERONE ACETATE
     Indication: Transgender hormonal therapy
  3. ACETAMINOPHEN [Concomitant]
     Active Substance: ACETAMINOPHEN
     Indication: Headache
     Dosage: AS NECESSARY
  4. ESTRADIOL [Concomitant]
     Active Substance: ESTRADIOL
     Indication: Transgender hormonal therapy
  5. SPIRONOLACTONE [Concomitant]
     Active Substance: SPIRONOLACTONE
     Indication: Transgender hormonal therapy
     Route: 048

REACTIONS (2)
  - Drug-induced liver injury [Unknown]
  - Hepatocellular injury [Recovering/Resolving]
